FAERS Safety Report 20162185 (Version 1)
Quarter: 2021Q4

REPORT INFORMATION
  Report Type: Spontaneous
  Country: DE (occurrence: DE)
  Receive Date: 20211208
  Receipt Date: 20211208
  Transmission Date: 20220303
  Serious: Yes (Other)
  Sender: FDA-Public Use
  Company Number: DE-NOVARTISPH-NVSC2021DE280279

PATIENT
  Age: 56 Year
  Sex: Female

DRUGS (8)
  1. RIBOCICLIB [Suspect]
     Active Substance: RIBOCICLIB
     Indication: Metastatic malignant melanoma
     Dosage: 200 MG, QD 21D Q28
     Route: 065
  2. RIBOCICLIB [Suspect]
     Active Substance: RIBOCICLIB
     Dosage: 400 MG, PER DAY 21D Q28.
     Route: 065
  3. BINIMETINIB [Concomitant]
     Active Substance: BINIMETINIB
     Indication: Metastatic malignant melanoma
     Dosage: 45 MG, BID
     Route: 065
  4. TETRACYCLINE [Concomitant]
     Active Substance: TETRACYCLINE
     Indication: Dermatitis acneiform
     Dosage: UNK
     Route: 048
  5. DOXYCYCLINE [Concomitant]
     Active Substance: DOXYCYCLINE
     Indication: Dermatitis acneiform
     Dosage: 100 MG
     Route: 048
  6. MINOCYCLINE [Concomitant]
     Active Substance: MINOCYCLINE HYDROCHLORIDE
     Indication: Dermatitis acneiform
     Dosage: 50 MG
     Route: 048
  7. PREDNISOLONE [Concomitant]
     Active Substance: PREDNISOLONE
     Indication: Pneumonitis
     Dosage: 100 MG, QD
     Route: 042
  8. PREDNISOLONE [Concomitant]
     Active Substance: PREDNISOLONE
     Dosage: 20 MG, QW
     Route: 042

REACTIONS (3)
  - Malignant neoplasm progression [Unknown]
  - Malignant melanoma [Unknown]
  - Product use in unapproved indication [Unknown]
